FAERS Safety Report 4733592-3 (Version None)
Quarter: 2005Q3

REPORT INFORMATION
  Report Type: 
  Country: None (occurrence: None)
  Receive Date: 20050729
  Receipt Date: 20050610
  Transmission Date: 20060218
  Serious: No
  Sender: FDA-Public Use
  Company Number: COT_0095_2005

PATIENT
  Age: 60 Year
  Sex: Female
  Weight: 94.3 kg

DRUGS (4)
  1. VENTAVIS [Suspect]
     Dosage: DF UNK IH
     Route: 055
  2. TRACLEER [Concomitant]
  3. SINGULAIR [Concomitant]
  4. PULMICORT [Concomitant]

REACTIONS (2)
  - DYSPNOEA [None]
  - FLUID RETENTION [None]
